FAERS Safety Report 6217337-6 (Version None)
Quarter: 2009Q2

REPORT INFORMATION
  Report Type: 
  Country: None (occurrence: None)
  Receive Date: 20090604
  Receipt Date: 20090604
  Transmission Date: 20091009
  Serious: No
  Sender: FDA-Public Use
  Company Number: None

PATIENT

DRUGS (1)
  1. BUPIVACAINE [Suspect]
     Indication: PREOPERATIVE CARE
     Dosage: 2 ML
     Dates: start: 20090529, end: 20090529

REACTIONS (1)
  - DRUG INEFFECTIVE [None]
